FAERS Safety Report 16563501 (Version 1)
Quarter: 2019Q3

REPORT INFORMATION
  Report Type: Spontaneous
  Country: US (occurrence: US)
  Receive Date: 20190712
  Receipt Date: 20190712
  Transmission Date: 20191004
  Serious: No
  Sender: FDA-Public Use
  Company Number: US-ACCORD-126860

PATIENT
  Sex: Female

DRUGS (1)
  1. SPIRONOLACTONE ACCORD [Suspect]
     Active Substance: SPIRONOLACTONE
     Indication: PRODUCT USED FOR UNKNOWN INDICATION
     Dosage: MUST TAKE 3 PILLS PER DAY

REACTIONS (3)
  - Product taste abnormal [Unknown]
  - Product substitution issue [Unknown]
  - Product odour abnormal [Unknown]
